FAERS Safety Report 8548727-4 (Version None)
Quarter: 2012Q3

REPORT INFORMATION
  Report Type: 
  Country: None (occurrence: None)
  Receive Date: 20120730
  Receipt Date: 20120723
  Transmission Date: 20120928
  Serious: Yes (Other)
  Sender: FDA-Public Use
  Company Number: PHHY2012JP041146

PATIENT
  Sex: Female
  Weight: 55 kg

DRUGS (3)
  1. TAXOL [Concomitant]
     Indication: BREAST CANCER
     Dosage: 100 MG, QW
     Dates: start: 20110915
  2. FEMARA [Suspect]
     Indication: BREAST CANCER
     Dosage: 2.5 MG DAILY
     Route: 048
     Dates: start: 20110829, end: 20110914
  3. AVASTIN [Concomitant]
     Indication: BREAST CANCER
     Dosage: 10 MG/KG, BIW
     Route: 041
     Dates: start: 20120210, end: 20120224

REACTIONS (2)
  - ATELECTASIS [None]
  - CHEST PAIN [None]
